FAERS Safety Report 7666880-1 (Version None)
Quarter: 2011Q3

REPORT INFORMATION
  Report Type: 
  Country: None (occurrence: None)
  Receive Date: 20110806
  Receipt Date: 20110227
  Transmission Date: 20111222
  Serious: No
  Sender: FDA-Public Use
  Company Number: US-ABBOTT-11P-163-0708096-00

PATIENT
  Sex: Female
  Weight: 78.088 kg

DRUGS (1)
  1. NIASPAN [Suspect]
     Indication: PRODUCT USED FOR UNKNOWN INDICATION
     Dates: start: 20110226

REACTIONS (6)
  - SKIN BURNING SENSATION [None]
  - PRURITUS [None]
  - PARAESTHESIA [None]
  - NAUSEA [None]
  - ERYTHEMA [None]
  - FLUSHING [None]
